FAERS Safety Report 8319703-1 (Version None)
Quarter: 2012Q2

REPORT INFORMATION
  Report Type: 
  Country: None (occurrence: None)
  Receive Date: 20120427
  Receipt Date: 20120418
  Transmission Date: 20120825
  Serious: Yes (Other)
  Sender: FDA-Public Use
  Company Number: US-ELI_LILLY_AND_COMPANY-US201204007096

PATIENT
  Sex: Male

DRUGS (4)
  1. BYDUREON [Suspect]
     Indication: TYPE 2 DIABETES MELLITUS
     Dosage: 2 MG, WEEKLY (1/W)
     Route: 058
  2. ONGLYZA [Concomitant]
     Indication: TYPE 2 DIABETES MELLITUS
     Dosage: 5 MG, QD
     Route: 048
  3. EPIPEN [Concomitant]
     Indication: HYPERSENSITIVITY
     Dosage: UNK, PRN
     Route: 058
     Dates: start: 20120417
  4. BENADRYL [Concomitant]
     Indication: HYPERSENSITIVITY
     Dosage: 50 MG, PRN
     Route: 048
     Dates: start: 20120417

REACTIONS (4)
  - OEDEMA PERIPHERAL [None]
  - INJECTION SITE MASS [None]
  - LIP SWELLING [None]
  - INJECTION SITE SWELLING [None]
